FAERS Safety Report 22061067 (Version 1)
Quarter: 2023Q1

REPORT INFORMATION
  Report Type: Spontaneous
  Country: US (occurrence: US)
  Receive Date: 20230303
  Receipt Date: 20230303
  Transmission Date: 20230418
  Serious: No
  Sender: FDA-Public Use
  Company Number: US-Covis Pharma GmbH-2023COV00065

PATIENT
  Age: 32 Year
  Sex: Female

DRUGS (5)
  1. FERAHEME [Suspect]
     Active Substance: FERUMOXYTOL NON-STOICHIOMETRIC MAGNETITE
     Indication: Product used for unknown indication
     Route: 042
     Dates: start: 202101
  2. ADDERALL [Concomitant]
     Active Substance: AMPHETAMINE ASPARTATE\AMPHETAMINE SULFATE\DEXTROAMPHETAMINE SACCHARATE\DEXTROAMPHETAMINE SULFATE
  3. ARMODAFINIL [Concomitant]
     Active Substance: ARMODAFINIL
     Indication: Insomnia
  4. WAKIX [Concomitant]
     Active Substance: PITOLISANT HYDROCHLORIDE
     Indication: Insomnia
  5. OXYBATE [Concomitant]
     Active Substance: OXYBATE
     Indication: Insomnia

REACTIONS (11)
  - Somnolence [Unknown]
  - Impaired driving ability [Unknown]
  - Amenorrhoea [Unknown]
  - Serum ferritin decreased [Unknown]
  - Idiopathic environmental intolerance [Unknown]
  - Muscle twitching [Unknown]
  - Haematidrosis [Unknown]
  - Ear haemorrhage [Unknown]
  - Cerebrospinal fluid leakage [Unknown]
  - Oedema peripheral [Unknown]
  - Fatigue [Unknown]

NARRATIVE: CASE EVENT DATE: 20210101
